FAERS Safety Report 6637593-X (Version None)
Quarter: 2010Q1

REPORT INFORMATION
  Report Type: 
  Country: None (occurrence: None)
  Receive Date: 20100311
  Receipt Date: 20100222
  Transmission Date: 20100710
  Serious: Yes (Hospitalization)
  Sender: FDA-Public Use
  Company Number: 220001M10COL

PATIENT
  Age: 7 Year

DRUGS (1)
  1. SOMATROPIN (SOMATROPIN) [Suspect]
     Indication: SMALL FOR DATES BABY
     Dosage: 0.05 MG/KG, 1 IN 1 DAYS, SUBCUTANEOUS
     Route: 058
     Dates: start: 20100113

REACTIONS (6)
  - CONFUSIONAL STATE [None]
  - HEADACHE [None]
  - IRRITABILITY [None]
  - MENTAL STATUS CHANGES [None]
  - SOMNOLENCE [None]
  - VOMITING [None]
